FAERS Safety Report 8890904 (Version 1)
Quarter: 2012Q4

REPORT INFORMATION
  Report Type: 
  Country: US (occurrence: US)
  Receive Date: 20121106
  Receipt Date: 20121106
  Transmission Date: 20130627
  Serious: No
  Sender: FDA-Public Use
  Company Number: US-PFIZER INC-2012272574

PATIENT
  Age: 56 Year
  Sex: Female
  Weight: 64.4 kg

DRUGS (4)
  1. ESTRING [Suspect]
     Indication: POSTMENOPAUSAL SYMPTOMS
     Dosage: UNK
     Route: 067
     Dates: start: 20121022, end: 20121022
  2. ALLEGRA [Concomitant]
     Dosage: UNK
  3. LOVASTATIN [Concomitant]
     Dosage: UNK
  4. SYNTHROID [Concomitant]
     Dosage: UNK

REACTIONS (7)
  - Vomiting [Unknown]
  - Dizziness [Unknown]
  - Wheezing [Unknown]
  - Nasal congestion [Unknown]
  - Asthenia [Unknown]
  - Rash pruritic [Unknown]
  - Hypersensitivity [Unknown]
